FAERS Safety Report 13718837 (Version 4)
Quarter: 2018Q1

REPORT INFORMATION
  Report Type: Spontaneous
  Country: US (occurrence: US)
  Receive Date: 20170705
  Receipt Date: 20180205
  Transmission Date: 20180508
  Serious: Yes (Hospitalization, Disabling, Other)
  Sender: FDA-Public Use
  Company Number: US-JNJFOC-20170624392

PATIENT
  Age: 57 Year
  Sex: Female

DRUGS (6)
  1. SYNTHROID [Concomitant]
     Active Substance: LEVOTHYROXINE SODIUM
     Route: 065
  2. PREDNISONE. [Concomitant]
     Active Substance: PREDNISONE
     Route: 065
  3. XARELTO [Suspect]
     Active Substance: RIVAROXABAN
     Indication: THROMBOSIS
     Dosage: IN THE EVENING
     Route: 048
     Dates: start: 201503
  4. PLAQUENIL [Concomitant]
     Active Substance: HYDROXYCHLOROQUINE SULFATE
     Route: 065
  5. VITAMIN D [Concomitant]
     Active Substance: CHOLECALCIFEROL
     Route: 065
  6. LOPRESSOR [Concomitant]
     Active Substance: METOPROLOL TARTRATE
     Route: 065

REACTIONS (12)
  - Staphylococcal infection [Recovered/Resolved]
  - Overlap syndrome [Not Recovered/Not Resolved]
  - Shock [Not Recovered/Not Resolved]
  - Pneumonia [Recovered/Resolved]
  - Renal failure [Recovered/Resolved]
  - Rheumatic disorder [Not Recovered/Not Resolved]
  - Anaemia [Recovered/Resolved]
  - Hypokinesia [Not Recovered/Not Resolved]
  - Antiphospholipid syndrome [Unknown]
  - Systemic lupus erythematosus [Not Recovered/Not Resolved]
  - Product label issue [Unknown]
  - Arthritis bacterial [Recovered/Resolved]

NARRATIVE: CASE EVENT DATE: 201503
